FAERS Safety Report 5772520-9 (Version None)
Quarter: 2008Q2

REPORT INFORMATION
  Report Type: 
  Country: None (occurrence: None)
  Receive Date: 20080613
  Receipt Date: 20080605
  Transmission Date: 20081010
  Serious: Yes (Hospitalization)
  Sender: FDA-Public Use
  Company Number: CH-AMGEN-UK284886

PATIENT
  Sex: Female

DRUGS (2)
  1. PANITUMUMAB [Suspect]
     Indication: SQUAMOUS CELL CARCINOMA
     Route: 042
     Dates: start: 20080221, end: 20080508
  2. PANITUMUMAB - STUDY PROCEDURE [Suspect]

REACTIONS (2)
  - PNEUMONIA [None]
  - TUMOUR HAEMORRHAGE [None]
